FAERS Safety Report 8045208-1 (Version None)
Quarter: 2012Q1

REPORT INFORMATION
  Report Type: 
  Country: None (occurrence: None)
  Receive Date: 20120111
  Receipt Date: 20120111
  Transmission Date: 20120608
  Serious: Yes (Other)
  Sender: FDA-Public Use
  Company Number: None

PATIENT
  Age: 80 Year
  Sex: Male
  Weight: 68.0396 kg

DRUGS (1)
  1. URSODIOL [Suspect]
     Indication: CHOLELITHIASIS
     Dosage: 300 MG 3 TIMES DAILY
     Dates: start: 20111118, end: 20111125

REACTIONS (1)
  - BLOOD URINE PRESENT [None]
